FAERS Safety Report 4569114-X (Version None)
Quarter: 2005Q1

REPORT INFORMATION
  Report Type: 
  Country: None (occurrence: None)
  Receive Date: 20050201
  Receipt Date: 20050125
  Transmission Date: 20050727
  Serious: No
  Sender: FDA-Public Use
  Company Number: 1393

PATIENT
  Sex: Female

DRUGS (3)
  1. AMNESTEEM [Suspect]
     Dates: start: 20030301, end: 20030801
  2. AMNESTEEM [Suspect]
     Dates: start: 20031101, end: 20040101
  3. SOTRET [Concomitant]

REACTIONS (1)
  - MALIGNANT MELANOMA [None]
